FAERS Safety Report 4352577-2 (Version None)
Quarter: 2004Q2

REPORT INFORMATION
  Report Type: 
  Country: None (occurrence: None)
  Receive Date: 20040503
  Receipt Date: 20040503
  Transmission Date: 20050107
  Serious: Yes (Hospitalization, Other)
  Sender: FDA-Public Use
  Company Number: None

PATIENT
  Age: 39 Year
  Sex: Male
  Weight: 62.1428 kg

DRUGS (1)
  1. AMIFOSINE 500 MG DAILY [Suspect]
     Indication: CARCINOMA
     Dosage: 500 MG SC
     Route: 058

REACTIONS (1)
  - RASH [None]
